FAERS Safety Report 6380073-X (Version None)
Quarter: 2009Q3

REPORT INFORMATION
  Report Type: 
  Country: None (occurrence: None)
  Receive Date: 20090929
  Receipt Date: 20090914
  Transmission Date: 20100115
  Serious: Yes (Life-Threatening)
  Sender: FDA-Public Use
  Company Number: DE-RANBAXY-2009RR-28126

PATIENT
  Age: 6 Year
  Sex: Female
  Weight: 21 kg

DRUGS (2)
  1. CEFACLOR [Suspect]
     Dosage: 10 ML, QD
     Dates: start: 20090803
  2. IBUPROFEN [Suspect]
     Dosage: 5 ML, QD
     Dates: start: 20090803

REACTIONS (2)
  - ANGIOEDEMA [None]
  - DYSPNOEA [None]
